FAERS Safety Report 9352954 (Version 1)
Quarter: 2013Q2

REPORT INFORMATION
  Report Type: Spontaneous
  Country: FR (occurrence: FR)
  Receive Date: 20130618
  Receipt Date: 20130618
  Transmission Date: 20140414
  Serious: Yes (Hospitalization)
  Sender: FDA-Public Use
  Company Number: FR-TEVA-412896ISR

PATIENT
  Age: 69 Year
  Sex: Male

DRUGS (10)
  1. FUROSEMIDE TEVA 40MG [Suspect]
     Indication: OEDEMA PERIPHERAL
     Dosage: 3 SCORED TABLETS IN TOTAL
     Route: 048
     Dates: start: 20130606
  2. ZOPICLONE [Suspect]
  3. LAROXYL [Suspect]
     Route: 048
     Dates: start: 20130604, end: 20130605
  4. COAPROVEL [Concomitant]
     Dosage: 1 DOSAGE FORMS DAILY; IRBESARTAN 300MG/HYDROCHLOROTHIAZIDE 12.5MG
     Route: 048
  5. CRESTOR 10MG [Concomitant]
     Dosage: 1 DOSAGE FORMS DAILY;
  6. CELECTOL 200 MG [Concomitant]
     Dosage: 1.5 DOSAGE FORMS DAILY; 1 CAP IN THE MORNING AND 1/2 IN THE EVENING
     Route: 048
  7. KARDEGIC 75 MG [Concomitant]
     Dosage: 1 DOSAGE FORMS DAILY;
     Route: 048
  8. SECTRAL [Concomitant]
     Dosage: 1 DOSAGE FORMS DAILY;
     Route: 048
  9. CORTISONE [Concomitant]
     Dosage: LONG TERM
  10. XATRAL [Concomitant]

REACTIONS (10)
  - Malaise [Unknown]
  - Loss of consciousness [Recovered/Resolved]
  - Erysipelas [Recovering/Resolving]
  - Wrong drug administered [Unknown]
  - Fall [Unknown]
  - Wound [Unknown]
  - Skin atrophy [Unknown]
  - Ecchymosis [Unknown]
  - Pyrexia [Recovered/Resolved]
  - Logorrhoea [Unknown]
